FAERS Safety Report 24594015 (Version 5)
Quarter: 2025Q1

REPORT INFORMATION
  Report Type: Spontaneous
  Country: IT (occurrence: IT)
  Receive Date: 20241108
  Receipt Date: 20250218
  Transmission Date: 20250409
  Serious: No
  Sender: PFIZER
  Company Number: IT-PFIZER INC-PV202400143776

PATIENT
  Age: 66 Year
  Sex: Male

DRUGS (3)
  1. FILGRASTIM [Suspect]
     Active Substance: FILGRASTIM
     Indication: Neutropenia
     Route: 058
     Dates: start: 20240129, end: 20240205
  2. FILGRASTIM [Suspect]
     Active Substance: FILGRASTIM
  3. FILGRASTIM [Suspect]
     Active Substance: FILGRASTIM

REACTIONS (3)
  - Device mechanical issue [Unknown]
  - Device malfunction [Unknown]
  - Drug dose omission by device [Unknown]
